FAERS Safety Report 11061359 (Version 2)
Quarter: 2015Q2

REPORT INFORMATION
  Report Type: Spontaneous
  Country: US (occurrence: US)
  Receive Date: 20150424
  Receipt Date: 20150505
  Transmission Date: 20150821
  Serious: No
  Sender: FDA-Public Use
  Company Number: US-PFIZER INC-2015137574

PATIENT
  Age: 58 Year
  Sex: Female
  Weight: 65 kg

DRUGS (3)
  1. SUTENT [Suspect]
     Active Substance: SUNITINIB MALATE
     Dosage: 25 MG, DAILY FOR 28 DAYS ON AND 14DAYS OFF
     Dates: start: 2015
  2. MS CONTIN [Concomitant]
     Active Substance: MORPHINE SULFATE
     Dosage: UNK
  3. SUTENT [Suspect]
     Active Substance: SUNITINIB MALATE
     Indication: METASTATIC RENAL CELL CARCINOMA
     Dosage: 37.5 MG, DAILY  FOR 28 DAYS ON AND 14DAYS OFF
     Dates: start: 20150301, end: 2015

REACTIONS (9)
  - Depression [Unknown]
  - Irritability [Unknown]
  - Decreased appetite [Unknown]
  - Disturbance in attention [Unknown]
  - Weight decreased [Unknown]
  - Headache [Unknown]
  - Palpitations [Unknown]
  - Palmar-plantar erythrodysaesthesia syndrome [Unknown]
  - Fatigue [Unknown]

NARRATIVE: CASE EVENT DATE: 2015
